FAERS Safety Report 9380924 (Version 2)
Quarter: 2013Q3

REPORT INFORMATION
  Report Type: Report from Study
  Country: DE (occurrence: DE)
  Receive Date: 20130703
  Receipt Date: 20130703
  Transmission Date: 20140515
  Serious: Yes (Hospitalization)
  Sender: FDA-Public Use
  Company Number: DE-ROCHE-1242274

PATIENT
  Age: 69 Year
  Sex: Male
  Weight: 54 kg

DRUGS (10)
  1. BEVACIZUMAB [Suspect]
     Indication: NON-SMALL CELL LUNG CANCER
     Dosage: LAST DOSE PRIOR TO SAE:28/MAY/2013
     Route: 042
  2. OMEPRAZOLE [Concomitant]
     Indication: GASTRITIS PROPHYLAXIS
     Route: 048
  3. FOLIC ACID [Concomitant]
     Route: 048
  4. SODIUM PICOSULFATE [Concomitant]
     Route: 065
  5. HYDROMORPHONE [Concomitant]
     Indication: ANALGESIC THERAPY
     Route: 065
  6. CEFUROXIM [Concomitant]
     Indication: ANTIBIOTIC THERAPY
     Route: 065
  7. LACTULOSE [Concomitant]
     Route: 065
  8. THIAMIN [Concomitant]
     Route: 065
  9. KALINOR [Concomitant]
     Route: 065
  10. BISACODYL [Concomitant]

REACTIONS (3)
  - Pneumonia [Recovering/Resolving]
  - Pleural effusion [Recovering/Resolving]
  - Cholecystitis acute [Recovering/Resolving]
